FAERS Safety Report 14228089 (Version 1)
Quarter: 2017Q4

REPORT INFORMATION
  Report Type: Spontaneous
  Country: US (occurrence: US)
  Receive Date: 20171127
  Receipt Date: 20171127
  Transmission Date: 20180321
  Serious: Yes (Other)
  Sender: FDA-Public Use
  Company Number: US-DSJP-DSU-2017-133073

PATIENT

DRUGS (2)
  1. BENICAR [Suspect]
     Active Substance: OLMESARTAN MEDOXOMIL
     Dosage: 40 MG, QD
     Route: 048
     Dates: start: 20090312, end: 20170401
  2. BENICAR [Suspect]
     Active Substance: OLMESARTAN MEDOXOMIL
     Indication: HYPERTENSION
     Dosage: 20 MG, QD
     Route: 048
     Dates: start: 20090312, end: 20170401

REACTIONS (6)
  - Irritable bowel syndrome [Recovering/Resolving]
  - Diverticulum [Unknown]
  - Haematochezia [Unknown]
  - Malabsorption [Unknown]
  - Diverticulitis [Unknown]
  - Syncope [Unknown]

NARRATIVE: CASE EVENT DATE: 201203
